FAERS Safety Report 18534784 (Version 3)
Quarter: 2020Q4

REPORT INFORMATION
  Report Type: Report from Study
  Country: HU (occurrence: HU)
  Receive Date: 20201123
  Receipt Date: 20201217
  Transmission Date: 20210114
  Serious: Yes (Other)
  Sender: FDA-Public Use
  Company Number: HU-JNJFOC-20201122833

PATIENT
  Age: 79 Year
  Sex: Male

DRUGS (13)
  1. ELIQUIS [Concomitant]
     Active Substance: APIXABAN
     Dosage: 2X5 MG
     Route: 065
  2. EDNYT [Concomitant]
     Dosage: 2X5 MG
     Route: 065
  3. VEROSPIRON [Concomitant]
     Active Substance: SPIRONOLACTONE
     Dosage: 1X25 MG
     Route: 065
  4. STELARA [Suspect]
     Active Substance: USTEKINUMAB
     Indication: PSORIASIS
     Route: 058
     Dates: start: 20200528, end: 20200625
  5. MILURIT [Concomitant]
     Active Substance: ALLOPURINOL
     Dosage: 1X300 MG
     Route: 065
  6. HYPOTHIAZIDE [Concomitant]
     Active Substance: HYDROCHLOROTHIAZIDE
     Dosage: 1X25 MG
     Route: 065
  7. FUROSEMIDE AL [Concomitant]
     Active Substance: FUROSEMIDE SODIUM
     Dosage: 125-125-0 MG
     Route: 065
  8. QUAMATEL [Concomitant]
     Active Substance: FAMOTIDINE
     Dosage: 2X40 MG
     Route: 065
  9. NEBIBETA [Concomitant]
     Active Substance: NEBIVOLOL HYDROCHLORIDE
     Dosage: 1X2.5 MG
     Route: 065
  10. LEGALON [Concomitant]
     Active Substance: DIETARY SUPPLEMENT\HERBALS\MILK THISTLE
     Dosage: 3X1 TBL
     Route: 065
  11. NEO FERRO FOLGAMMA [Concomitant]
     Dosage: 2X1 TBL
     Route: 065
  12. NUTRIDRINK MAX [Concomitant]
     Dosage: 1X300 ML
     Route: 065
  13. KALDYUM [Concomitant]
     Active Substance: POTASSIUM CHLORIDE
     Dosage: 2X1200 MG
     Route: 065

REACTIONS (3)
  - Diarrhoea [Recovered/Resolved]
  - Syncope [Recovered/Resolved]
  - Peripheral swelling [Unknown]

NARRATIVE: CASE EVENT DATE: 2020
